FAERS Safety Report 8178080-X (Version None)
Quarter: 2012Q1

REPORT INFORMATION
  Report Type: 
  Country: None (occurrence: None)
  Receive Date: 20120301
  Receipt Date: 20120224
  Transmission Date: 20120608
  Serious: No
  Sender: FDA-Public Use
  Company Number: US-PFIZER INC-2012017102

PATIENT
  Sex: Female

DRUGS (2)
  1. LYRICA [Suspect]
     Dosage: 75 MG, 1 Q SUPPER AND QHS
     Route: 048
  2. NEURONTIN [Suspect]
     Indication: BACK DISORDER
     Dosage: UNK

REACTIONS (4)
  - PSYCHOMOTOR HYPERACTIVITY [None]
  - DRY MOUTH [None]
  - DRUG INEFFECTIVE [None]
  - NASOPHARYNGITIS [None]
